FAERS Safety Report 10417725 (Version 1)
Quarter: 2014Q2

REPORT INFORMATION
  Report Type: Spontaneous
  Country: US (occurrence: None)
  Receive Date: 20140609
  Receipt Date: 20140609
  Transmission Date: 20141212
  Serious: No
  Sender: FDA-Public Use
  Company Number: 2014TUS001730

PATIENT
  Sex: Female

DRUGS (2)
  1. BRINTELLIX [Suspect]
     Route: 048
     Dates: start: 20140308
  2. BABY ASPIRIN (ACETYLSALICYCLIC ACID) [Concomitant]

REACTIONS (4)
  - Haemorrhage [None]
  - Skin abrasion [None]
  - Condition aggravated [None]
  - Abscess [None]
